FAERS Safety Report 19361441 (Version 2)
Quarter: 2021Q4

REPORT INFORMATION
  Report Type: Report from Study
  Country: KR (occurrence: KR)
  Receive Date: 20210603
  Receipt Date: 20211102
  Transmission Date: 20220303
  Serious: Yes (Other)
  Sender: FDA-Public Use
  Company Number: KR-KYOWAKIRIN-2021AKK009222

PATIENT
  Sex: Female

DRUGS (69)
  1. FILGRASTIM [Suspect]
     Active Substance: FILGRASTIM
     Indication: Product used for unknown indication
     Dosage: 300 UNK
     Route: 065
     Dates: start: 20180628, end: 20180628
  2. FILGRASTIM [Suspect]
     Active Substance: FILGRASTIM
     Dosage: 300 UNK
     Route: 065
     Dates: start: 20180719, end: 20180719
  3. FILGRASTIM [Suspect]
     Active Substance: FILGRASTIM
     Dosage: 300 UNK
     Route: 065
     Dates: start: 20180828, end: 20180828
  4. FILGRASTIM [Suspect]
     Active Substance: FILGRASTIM
     Dosage: 300 UNK
     Route: 065
     Dates: start: 20180918, end: 20180918
  5. FILGRASTIM [Suspect]
     Active Substance: FILGRASTIM
     Dosage: 300 UNK
     Route: 065
     Dates: start: 20181008, end: 20181008
  6. FILGRASTIM [Suspect]
     Active Substance: FILGRASTIM
     Dosage: 300 UNK
     Route: 065
     Dates: start: 20181030, end: 20181030
  7. FILGRASTIM [Suspect]
     Active Substance: FILGRASTIM
     Dosage: 300 UNK
     Route: 065
     Dates: start: 20181120, end: 20181120
  8. FILGRASTIM [Suspect]
     Active Substance: FILGRASTIM
     Dosage: 300 UNK
     Route: 065
     Dates: start: 20181211, end: 20181211
  9. FILGRASTIM [Suspect]
     Active Substance: FILGRASTIM
     Dosage: 300 UNK
     Route: 065
     Dates: start: 20190122, end: 20190122
  10. DOCETAXEL [Concomitant]
     Active Substance: DOCETAXEL
     Indication: Product used for unknown indication
     Dosage: 60 UNK
     Dates: start: 20180509, end: 20180509
  11. DOCETAXEL [Concomitant]
     Active Substance: DOCETAXEL
     Dosage: 60 UNK
     Dates: start: 20180529, end: 20180529
  12. DOCETAXEL [Concomitant]
     Active Substance: DOCETAXEL
     Dosage: 60 UNK
     Dates: start: 20180619, end: 20180619
  13. DOCETAXEL [Concomitant]
     Active Substance: DOCETAXEL
     Dosage: 60 UNK
     Dates: start: 20180710, end: 20180710
  14. DOCETAXEL [Concomitant]
     Active Substance: DOCETAXEL
     Dosage: 60 UNK
     Dates: start: 20180731, end: 20180731
  15. DOCETAXEL [Concomitant]
     Active Substance: DOCETAXEL
     Dosage: 60 UNK
     Dates: start: 20180821, end: 20180821
  16. DOCETAXEL [Concomitant]
     Active Substance: DOCETAXEL
     Dosage: 60 UNK
     Dates: start: 20180911, end: 20180911
  17. DOCETAXEL [Concomitant]
     Active Substance: DOCETAXEL
     Dosage: 60 UNK
     Dates: start: 20181002, end: 20181002
  18. DOCETAXEL [Concomitant]
     Active Substance: DOCETAXEL
     Dosage: 60 UNK
     Dates: start: 20181023, end: 20181023
  19. DOCETAXEL [Concomitant]
     Active Substance: DOCETAXEL
     Dosage: 60 UNK
     Dates: start: 20181113, end: 20181113
  20. DOCETAXEL [Concomitant]
     Active Substance: DOCETAXEL
     Dosage: 60 UNK
     Dates: start: 20181204, end: 20181204
  21. DOCETAXEL [Concomitant]
     Active Substance: DOCETAXEL
     Dosage: 60 UNK
     Dates: start: 20181227, end: 20181227
  22. DOCETAXEL [Concomitant]
     Active Substance: DOCETAXEL
     Dosage: 60 UNK
     Dates: start: 20190115, end: 20190115
  23. PERTUZUMAB [Concomitant]
     Active Substance: PERTUZUMAB
     Indication: Product used for unknown indication
     Dosage: 420 MG
     Dates: start: 20180529, end: 20180529
  24. PERTUZUMAB [Concomitant]
     Active Substance: PERTUZUMAB
     Dosage: 420 MG
     Dates: start: 20180619, end: 20180619
  25. PERTUZUMAB [Concomitant]
     Active Substance: PERTUZUMAB
     Dosage: 420 MG
     Dates: start: 20180710, end: 20180710
  26. PERTUZUMAB [Concomitant]
     Active Substance: PERTUZUMAB
     Dosage: 420 MG
     Dates: start: 20180731, end: 20180731
  27. PERTUZUMAB [Concomitant]
     Active Substance: PERTUZUMAB
     Dosage: 420 MG
     Dates: start: 20180821, end: 20180821
  28. PERTUZUMAB [Concomitant]
     Active Substance: PERTUZUMAB
     Dosage: 420 MG
     Dates: start: 20180911, end: 20180911
  29. PERTUZUMAB [Concomitant]
     Active Substance: PERTUZUMAB
     Dosage: 420 MG
     Dates: start: 20181002, end: 20181002
  30. PERTUZUMAB [Concomitant]
     Active Substance: PERTUZUMAB
     Dosage: 420 MG
     Dates: start: 20181023, end: 20181023
  31. PERTUZUMAB [Concomitant]
     Active Substance: PERTUZUMAB
     Dosage: 420 MG
     Dates: start: 20181113, end: 20181113
  32. PERTUZUMAB [Concomitant]
     Active Substance: PERTUZUMAB
     Dosage: 420 MG
     Dates: start: 20181204, end: 20181204
  33. PERTUZUMAB [Concomitant]
     Active Substance: PERTUZUMAB
     Dosage: 420 MG
     Dates: start: 20181227, end: 20181227
  34. PERTUZUMAB [Concomitant]
     Active Substance: PERTUZUMAB
     Dosage: 420 MG
     Dates: start: 20190115, end: 20190115
  35. PERTUZUMAB [Concomitant]
     Active Substance: PERTUZUMAB
     Dosage: 840 MG
     Dates: start: 20180509, end: 20180509
  36. TRASTUZUMAB [Concomitant]
     Active Substance: TRASTUZUMAB
     Indication: Product used for unknown indication
     Dosage: UNK
     Dates: start: 20180509, end: 20180509
  37. TRASTUZUMAB [Concomitant]
     Active Substance: TRASTUZUMAB
     Dosage: UNK
     Dates: start: 20180529, end: 20180529
  38. TRASTUZUMAB [Concomitant]
     Active Substance: TRASTUZUMAB
     Dosage: UNK
     Dates: start: 20180619, end: 20180619
  39. TRASTUZUMAB [Concomitant]
     Active Substance: TRASTUZUMAB
     Dosage: UNK
     Dates: start: 20180710, end: 20180710
  40. TRASTUZUMAB [Concomitant]
     Active Substance: TRASTUZUMAB
     Dosage: UNK
     Dates: start: 20180731, end: 20180731
  41. TRASTUZUMAB [Concomitant]
     Active Substance: TRASTUZUMAB
     Dosage: UNK
     Dates: start: 20180821, end: 20180821
  42. TRASTUZUMAB [Concomitant]
     Active Substance: TRASTUZUMAB
     Dosage: UNK
     Dates: start: 20180911, end: 20180911
  43. TRASTUZUMAB [Concomitant]
     Active Substance: TRASTUZUMAB
     Dosage: UNK
     Dates: start: 20181002, end: 20181002
  44. TRASTUZUMAB [Concomitant]
     Active Substance: TRASTUZUMAB
     Dosage: UNK
     Dates: start: 20181023, end: 20181023
  45. TRASTUZUMAB [Concomitant]
     Active Substance: TRASTUZUMAB
     Dosage: UNK
     Dates: start: 20181113, end: 20181113
  46. TRASTUZUMAB [Concomitant]
     Active Substance: TRASTUZUMAB
     Dosage: UNK
     Dates: start: 20181204, end: 20181204
  47. TRASTUZUMAB [Concomitant]
     Active Substance: TRASTUZUMAB
     Dosage: UNK
     Dates: start: 20181227, end: 20181227
  48. TRASTUZUMAB [Concomitant]
     Active Substance: TRASTUZUMAB
     Dosage: UNK
     Dates: start: 20190115, end: 20190115
  49. AMOXICILLIN [Concomitant]
     Active Substance: AMOXICILLIN
     Indication: Product used for unknown indication
     Dosage: 1125 MILLIGRAM
     Dates: start: 20180828, end: 20180903
  50. CEFADROXIL [Concomitant]
     Active Substance: CEFADROXIL
     Indication: Product used for unknown indication
     Dosage: 1500 MG
     Dates: start: 20181120
  51. CIPROFLOXACIN [Concomitant]
     Active Substance: CIPROFLOXACIN
     Indication: Product used for unknown indication
     Dosage: 750 MG
     Dates: start: 20180828, end: 20180903
  52. DARBEPOETIN ALFA [Concomitant]
     Active Substance: DARBEPOETIN ALFA
     Dosage: 120 UNK
     Dates: start: 20180628
  53. DULOXETINE [Concomitant]
     Active Substance: DULOXETINE
     Indication: Product used for unknown indication
     Dosage: 30 MG
     Dates: start: 20181002, end: 20181228
  54. ESOMEPRAZOLE [Concomitant]
     Active Substance: ESOMEPRAZOLE
     Indication: Product used for unknown indication
     Dosage: 20 MG
     Dates: start: 20180719
  55. LEVETIRACETAM [Concomitant]
     Active Substance: LEVETIRACETAM
     Indication: Product used for unknown indication
     Dosage: 1 UNK
     Dates: start: 20180330, end: 20181210
  56. LEVETIRACETAM [Concomitant]
     Active Substance: LEVETIRACETAM
     Dosage: 500 MILLIGRAM
     Dates: start: 20181211
  57. LOPERAMIDE [Concomitant]
     Active Substance: LOPERAMIDE
     Indication: Product used for unknown indication
     Dosage: 6 MILLIGRAM
     Dates: start: 20180828, end: 20180903
  58. MAGNESIUM OXIDE [Concomitant]
     Active Substance: MAGNESIUM OXIDE
     Indication: Product used for unknown indication
     Dosage: 1500 MILLIGRAM
     Dates: start: 20181211, end: 20181226
  59. MAGNESIUM OXIDE [Concomitant]
     Active Substance: MAGNESIUM OXIDE
     Dosage: 1500 MILLIGRAM
     Dates: start: 20190115, end: 20190221
  60. MEGESTROL [Concomitant]
     Active Substance: MEGESTROL
     Indication: Product used for unknown indication
     Dosage: 5 UNK
     Dates: start: 20181127, end: 20181211
  61. MEGESTROL [Concomitant]
     Active Substance: MEGESTROL
     Dosage: 5 UNK
     Dates: start: 20180529, end: 20181008
  62. MOSAPRIDE [Concomitant]
     Active Substance: MOSAPRIDE
     Indication: Product used for unknown indication
     Dosage: 15 MG
     Dates: start: 20181211, end: 20181225
  63. MOSAPRIDE [Concomitant]
     Active Substance: MOSAPRIDE
     Dosage: 15 MG
     Dates: start: 20190115, end: 20190221
  64. OMEPRAZOLE [Concomitant]
     Active Substance: OMEPRAZOLE
     Indication: Product used for unknown indication
     Dosage: 20 MG
     Dates: start: 20180502, end: 20180719
  65. OXYCODONE/NALOXONE RATIOPHARM [Concomitant]
     Indication: Product used for unknown indication
     Dosage: 2 DF
     Dates: start: 20180828, end: 20180903
  66. PREGABALIN [Concomitant]
     Active Substance: PREGABALIN
     Indication: Product used for unknown indication
     Dosage: 150 MG
     Dates: start: 20181002, end: 20181228
  67. REBAMIPIDE [Concomitant]
     Active Substance: REBAMIPIDE
     Indication: Product used for unknown indication
     Dosage: 300 MG
     Dates: start: 20181120, end: 20181203
  68. ACETAMINOPHEN\TRAMADOL [Concomitant]
     Active Substance: ACETAMINOPHEN\TRAMADOL
     Indication: Product used for unknown indication
     Dosage: 2 DF
     Dates: start: 20181120
  69. ACETAMINOPHEN\TRAMADOL [Concomitant]
     Active Substance: ACETAMINOPHEN\TRAMADOL
     Dosage: 4 DF
     Dates: start: 20180821

REACTIONS (14)
  - Neuropathy peripheral [Recovering/Resolving]
  - Neutrophil count decreased [Recovered/Resolved]
  - Nail dystrophy [Recovering/Resolving]
  - Diarrhoea [Recovered/Resolved]
  - Chills [Recovered/Resolved]
  - Neutrophil count decreased [Recovered/Resolved]
  - Neutrophil count decreased [Recovered/Resolved]
  - Neutrophil count decreased [Recovered/Resolved]
  - Neutrophil count decreased [Recovered/Resolved]
  - Neutrophil count decreased [Recovered/Resolved]
  - Neutrophil count decreased [Recovered/Resolved]
  - Neutrophil count decreased [Recovered/Resolved]
  - Neutrophil count decreased [Recovered/Resolved]
  - Neutrophil count decreased [Recovered/Resolved]

NARRATIVE: CASE EVENT DATE: 20180628
